FAERS Safety Report 24155007 (Version 1)
Quarter: 2024Q3

REPORT INFORMATION
  Report Type: Spontaneous
  Country: US (occurrence: US)
  Receive Date: 20240731
  Receipt Date: 20240731
  Transmission Date: 20241017
  Serious: No
  Sender: PHARMACOSMOS
  Company Number: US-NEBO-663190

PATIENT
  Age: 73 Year
  Sex: Male

DRUGS (10)
  1. ATORVASTATIN [Concomitant]
     Active Substance: ATORVASTATIN
  2. CELEBREX [Concomitant]
     Active Substance: CELECOXIB
  3. HYDROCHLOROTHIAZIDE\LISINOPRIL [Concomitant]
     Active Substance: HYDROCHLOROTHIAZIDE\LISINOPRIL
  4. PLAVIX [Concomitant]
     Active Substance: CLOPIDOGREL BISULFATE
  5. MONOFERRIC [Suspect]
     Active Substance: FERRIC DERISOMALTOSE
     Indication: Product used for unknown indication
     Dates: start: 20240626, end: 20240626
  6. MONOFERRIC [Suspect]
     Active Substance: FERRIC DERISOMALTOSE
     Indication: Product used for unknown indication
     Dates: start: 20240626, end: 20240626
  7. ATENOLOL [Concomitant]
     Active Substance: ATENOLOL
  8. ASPIRIN [Concomitant]
     Active Substance: ASPIRIN
  9. FERROUS SULFATE [Concomitant]
     Active Substance: FERROUS SULFATE
  10. VITAMINS [Concomitant]
     Active Substance: VITAMINS

REACTIONS (2)
  - Pruritus [Unknown]
  - Flushing [Unknown]

NARRATIVE: CASE EVENT DATE: 20240626
